FAERS Safety Report 26064060 (Version 4)
Quarter: 2025Q4

REPORT INFORMATION
  Report Type: Report from Study
  Country: US (occurrence: US)
  Receive Date: 20251119
  Receipt Date: 20251215
  Transmission Date: 20260117
  Serious: Yes (Other)
  Sender: ABBVIE
  Company Number: US-ABBVIE-6553461

PATIENT
  Age: 47 Year
  Sex: Female

DRUGS (2)
  1. SKYRIZI [Suspect]
     Active Substance: RISANKIZUMAB-RZAA
     Indication: Psoriasis
     Dosage: DOSE FORM: SOLUTION FOR INJECTION IN PRE-FILLED PEN
     Route: 058
     Dates: start: 20250701
  2. SKYRIZI [Suspect]
     Active Substance: RISANKIZUMAB-RZAA
     Route: 058
     Dates: start: 202506, end: 2025

REACTIONS (3)
  - Blindness [Unknown]
  - Illness [Unknown]
  - Needle issue [Not Recovered/Not Resolved]

NARRATIVE: CASE EVENT DATE: 20250101
